FAERS Safety Report 13042890 (Version 1)
Quarter: 2016Q4

REPORT INFORMATION
  Report Type: Spontaneous
  Country: US (occurrence: US)
  Receive Date: 20161219
  Receipt Date: 20161219
  Transmission Date: 20170207
  Serious: No
  Sender: FDA-Public Use
  Company Number: US-JAZZ-2016-US-022737

PATIENT
  Sex: Female

DRUGS (1)
  1. XYREM [Suspect]
     Active Substance: SODIUM OXYBATE
     Indication: NARCOLEPSY
     Dosage: 4.5 G, BID
     Route: 048
     Dates: start: 20161015

REACTIONS (8)
  - Thinking abnormal [Unknown]
  - Paraesthesia [Unknown]
  - Dysgeusia [Unknown]
  - Unevaluable event [Unknown]
  - Dizziness [Unknown]
  - Tendon pain [Unknown]
  - Migraine [Unknown]
  - Initial insomnia [Unknown]
